FAERS Safety Report 5859067-6 (Version None)
Quarter: 2008Q3

REPORT INFORMATION
  Report Type: 
  Country: None (occurrence: None)
  Receive Date: 20080827
  Receipt Date: 20080815
  Transmission Date: 20090109
  Serious: Yes (Hospitalization)
  Sender: FDA-Public Use
  Company Number: SE-WYE-H05648208

PATIENT
  Sex: Male

DRUGS (11)
  1. CORDARONE [Suspect]
     Indication: CARDIAC DISORDER
     Dosage: DOSE AND FREQUENCY NOT SPECIFIED
     Route: 048
     Dates: end: 20080604
  2. SELOKEN [Concomitant]
     Dosage: DOSE AND FREQUENCY NOT SPECIFIED
     Route: 065
  3. OMEPRAZOLE [Concomitant]
     Dosage: DOSE AND FREQUENCY NOT SPECIFIED
     Route: 065
  4. FURIX [Concomitant]
     Dosage: DOSE AND FREQUENCY NOT SPECIFIED
     Route: 065
  5. FURIX [Concomitant]
     Dosage: GIVEN EXTRA DOSE (NOS) IN PHYSICIAN'S OFFICE
     Route: 065
     Dates: end: 20080601
  6. SPIRONOLACTONE [Concomitant]
     Dosage: DOSE AND FREQUENCY NOT SPECIFIED
     Route: 065
  7. ZESTRIL [Concomitant]
     Dosage: DOSE AND FREQUENCY NOT SPECIFIED
     Route: 065
  8. ACETYLCYSTEINE [Concomitant]
     Dosage: DOSE AND FREQUENCY NOT SPECIFIED
     Route: 065
  9. CORDARONE [Suspect]
     Dosage: DOSE AND FREQUENCY NOT SPECIFIED
     Route: 040
     Dates: start: 20080602, end: 20080601
  10. CORDARONE [Suspect]
     Dosage: DOSE AND FREQUENCY NOT SPECIFIED
     Route: 042
     Dates: start: 20080601, end: 20080604
  11. WARFARIN SODIUM [Concomitant]
     Dosage: DOSE AND FREQUENCY NOT SPECIFIED
     Route: 065

REACTIONS (2)
  - ATRIAL FIBRILLATION [None]
  - HYPERTHYROIDISM [None]
